FAERS Safety Report 8317660-5 (Version None)
Quarter: 2012Q2

REPORT INFORMATION
  Report Type: 
  Country: None (occurrence: None)
  Receive Date: 20120427
  Receipt Date: 20120416
  Transmission Date: 20120825
  Serious: Yes (Hospitalization, Other)
  Sender: FDA-Public Use
  Company Number: US-BRISTOL-MYERS SQUIBB COMPANY-16525602

PATIENT
  Age: 80 Year
  Sex: Female

DRUGS (1)
  1. CEFEPIME [Suspect]
     Indication: PNEUMONIA
     Dosage: 3 DAYS AGO

REACTIONS (3)
  - AGITATION [None]
  - STATUS EPILEPTICUS [None]
  - DISORIENTATION [None]
